FAERS Safety Report 7552640-9 (Version None)
Quarter: 2011Q2

REPORT INFORMATION
  Report Type: 
  Country: None (occurrence: None)
  Receive Date: 20110616
  Receipt Date: 20110615
  Transmission Date: 20111010
  Serious: Yes (Other)
  Sender: FDA-Public Use
  Company Number: US-UCBSA-035370

PATIENT
  Sex: Female

DRUGS (2)
  1. CIMZIA [Suspect]
     Dates: start: 20110101
  2. CIMZIA [Suspect]
     Indication: RHEUMATOID ARTHRITIS
     Dosage: INTERRUPTED FOR SURGERY
     Dates: start: 20101201, end: 20110101

REACTIONS (3)
  - KNEE ARTHROPLASTY [None]
  - PERIPHERAL EMBOLISM [None]
  - PULMONARY THROMBOSIS [None]
